FAERS Safety Report 8851270 (Version 1)
Quarter: 2012Q4

REPORT INFORMATION
  Report Type: 
  Country: NO (occurrence: NO)
  Receive Date: 20121019
  Receipt Date: 20121019
  Transmission Date: 20130627
  Serious: Yes (Hospitalization)
  Sender: FDA-Public Use
  Company Number: PHHY2012NO090417

PATIENT
  Age: 50 Year
  Sex: Male

DRUGS (2)
  1. METFORMIN [Suspect]
     Route: 065
  2. SAXAGLIPTIN [Suspect]
     Route: 048

REACTIONS (3)
  - Renal disorder [Unknown]
  - Acidosis [Unknown]
  - Malaise [Unknown]
